FAERS Safety Report 6984090-8 (Version None)
Quarter: 2010Q3

REPORT INFORMATION
  Report Type: 
  Country: None (occurrence: None)
  Receive Date: 20100915
  Receipt Date: 20090527
  Transmission Date: 20110219
  Serious: No
  Sender: FDA-Public Use
  Company Number: US-WYE-H09504909

PATIENT
  Age: 62 Year
  Sex: Female

DRUGS (4)
  1. PROTONIX [Suspect]
     Indication: ULCER
     Route: 048
     Dates: start: 20090526
  2. PROTONIX [Suspect]
     Indication: GASTROOESOPHAGEAL REFLUX DISEASE
  3. MORPHINE [Concomitant]
  4. REGLAN [Concomitant]

REACTIONS (1)
  - ABDOMINAL PAIN UPPER [None]
